FAERS Safety Report 8282671-5 (Version None)
Quarter: 2012Q2

REPORT INFORMATION
  Report Type: 
  Country: None (occurrence: None)
  Receive Date: 20120413
  Receipt Date: 20120330
  Transmission Date: 20120825
  Serious: Yes (Life-Threatening, Hospitalization, Other)
  Sender: FDA-Public Use
  Company Number: JP-SHIRE-ALL1-2012-01764

PATIENT
  Age: 73 Year
  Sex: Male

DRUGS (12)
  1. CINACALCET HYDROCHLORIDE [Concomitant]
     Indication: HYPERPARATHYROIDISM SECONDARY
     Dosage: 100 MG, UNKNOWN
     Route: 048
     Dates: start: 20080309
  2. ALOSENN                            /00476901/ [Concomitant]
     Indication: CONSTIPATION
     Dosage: 1.5 MG, UNKNOWN
     Route: 048
     Dates: start: 20030401
  3. OXAROL [Concomitant]
     Indication: HYPERPARATHYROIDISM SECONDARY
     Dosage: 10 ?G, 1X/WEEK
     Route: 042
     Dates: start: 20050312
  4. EPINASTINE HYDROCHLORIDE [Concomitant]
     Indication: PRODUCT USED FOR UNKNOWN INDICATION
     Dosage: 200 MG, UNKNOWN
     Route: 048
  5. GASTER                             /00661201/ [Concomitant]
     Indication: PRODUCT USED FOR UNKNOWN INDICATION
     Dosage: 10 MG, UNKNOWN
     Route: 048
  6. GASMOTIN [Concomitant]
     Indication: PRODUCT USED FOR UNKNOWN INDICATION
     Dosage: UNK, UNKNOWN
     Route: 048
  7. SORBITOL 50PC INJ [Concomitant]
     Indication: PRODUCT USED FOR UNKNOWN INDICATION
     Dosage: UNK, UNKNOWN
     Route: 065
  8. FOSRENOL [Suspect]
     Indication: HYPERPHOSPHATAEMIA
     Dosage: 750 MG, UNKNOWN
     Route: 048
     Dates: start: 20100202
  9. AMOBAN [Concomitant]
     Indication: PRODUCT USED FOR UNKNOWN INDICATION
     Dosage: 7.5 MG, 1X/DAY:QD
     Route: 048
  10. PURSENNID                          /00142207/ [Concomitant]
     Indication: CONSTIPATION
     Dosage: 36 MG, UNKNOWN
     Route: 048
     Dates: start: 20030401
  11. RENAGEL [Concomitant]
     Indication: HYPERPHOSPHATAEMIA
     Dosage: UNK, UNKNOWN
     Route: 048
     Dates: start: 20101125, end: 20110524
  12. RENAGEL [Concomitant]
     Dosage: UNK, UNKNOWN
     Route: 048
     Dates: start: 20110909

REACTIONS (3)
  - DIVERTICULITIS [None]
  - GASTROINTESTINAL PERFORATION [None]
  - DIVERTICULAR PERFORATION [None]
